FAERS Safety Report 20591436 (Version 1)
Quarter: 2022Q1

REPORT INFORMATION
  Report Type: Report from Study
  Country: US (occurrence: US)
  Receive Date: 20220314
  Receipt Date: 20220314
  Transmission Date: 20220423
  Serious: Yes (Death)
  Sender: FDA-Public Use
  Company Number: US-MYLANLABS-2022M1019559

PATIENT
  Age: 65 Year
  Sex: Male

DRUGS (3)
  1. DOCETAXEL [Suspect]
     Active Substance: DOCETAXEL
     Indication: Head and neck cancer
     Dosage: 75 MILLIGRAM/SQ. METER, Q3W
     Route: 065
  2. CISPLATIN [Suspect]
     Active Substance: CISPLATIN
     Indication: Head and neck cancer
     Dosage: 75 MILLIGRAM/SQ. METER, Q3W
     Route: 065
  3. FLUOROURACIL [Suspect]
     Active Substance: FLUOROURACIL
     Indication: Head and neck cancer
     Dosage: 750 MILLIGRAM/SQ. METER, QD, CYCLICAL; FOR DAYS 1 THROUGH 5 OF 21-DAY...
     Route: 065

REACTIONS (4)
  - Drug ineffective [Fatal]
  - Chalazion [Unknown]
  - Decreased appetite [Unknown]
  - Fatigue [Unknown]
